FAERS Safety Report 7141856-1 (Version None)
Quarter: 2010Q4

REPORT INFORMATION
  Report Type: 
  Country: None (occurrence: None)
  Receive Date: 20101207
  Receipt Date: 20101129
  Transmission Date: 20110411
  Serious: Yes (Other)
  Sender: FDA-Public Use
  Company Number: PHHY2010JP81242

PATIENT

DRUGS (1)
  1. ZOMETA [Suspect]
     Route: 041

REACTIONS (3)
  - OSTEOMYELITIS [None]
  - PAIN [None]
  - TOOTH EXTRACTION [None]
